FAERS Safety Report 6611602-6 (Version None)
Quarter: 2010Q1

REPORT INFORMATION
  Report Type: 
  Country: None (occurrence: None)
  Receive Date: 20100303
  Receipt Date: 20100219
  Transmission Date: 20100710
  Serious: Yes (Other)
  Sender: FDA-Public Use
  Company Number: US-SANOFI-AVENTIS-2010SA010107

PATIENT
  Sex: Male

DRUGS (1)
  1. AMBIEN [Suspect]
     Dosage: TAKES ONE TO TWO TABLETS AT BEDTIME
     Route: 048
     Dates: start: 20060101

REACTIONS (2)
  - ARTERIAL OCCLUSIVE DISEASE [None]
  - DRUG ABUSE [None]
